FAERS Safety Report 14068401 (Version 1)
Quarter: 2017Q4

REPORT INFORMATION
  Report Type: Spontaneous
  Country: US (occurrence: None)
  Receive Date: 20171010
  Receipt Date: 20171010
  Transmission Date: 20180321
  Serious: No
  Sender: FDA-Public Use
  Company Number: None

PATIENT
  Age: 57 Year
  Sex: Female

DRUGS (1)
  1. BOTOX [Suspect]
     Active Substance: ONABOTULINUMTOXINA

REACTIONS (6)
  - Vertigo [None]
  - Mobility decreased [None]
  - Nausea [None]
  - No reaction on previous exposure to drug [None]
  - Malaise [None]
  - Viral infection [None]

NARRATIVE: CASE EVENT DATE: 20171005
